FAERS Safety Report 20315271 (Version 1)
Quarter: 2022Q1

REPORT INFORMATION
  Report Type: Spontaneous
  Country: US (occurrence: None)
  Receive Date: 20220110
  Receipt Date: 20220110
  Transmission Date: 20220423
  Serious: No
  Sender: FDA-Public Use
  Company Number: US-ROCHE-2756261

PATIENT
  Age: 63 Year
  Sex: Female
  Weight: 117.13 kg

DRUGS (4)
  1. RITUXAN [Suspect]
     Active Substance: RITUXIMAB
     Indication: Rheumatoid arthritis
     Dosage: 2 IV INFUSIONS SEPARATED BY 2 WEEKS EVERY 6 MONTHS
     Route: 042
     Dates: start: 201610
  2. RITUXAN [Suspect]
     Active Substance: RITUXIMAB
     Dosage: 2 IV INFUSIONS SEPARATED BY 2 WEEKS EVERY 5 MONTHS
     Route: 042
  3. RITUXAN [Suspect]
     Active Substance: RITUXIMAB
     Dosage: 2 IV INFUSIONS SEPARATED BY 2 WEEKS EVERY 4 MONTHS
     Route: 042
  4. PREDNISONE [Concomitant]
     Active Substance: PREDNISONE
     Route: 048

REACTIONS (4)
  - Musculoskeletal stiffness [Recovered/Resolved]
  - Throat tightness [Not Recovered/Not Resolved]
  - Oropharyngeal discomfort [Not Recovered/Not Resolved]
  - Weight decreased [Recovering/Resolving]

NARRATIVE: CASE EVENT DATE: 20200901
